FAERS Safety Report 8607021 (Version 2)
Quarter: 2013Q3

REPORT INFORMATION
  Report Type: Spontaneous
  Country: US (occurrence: US)
  Receive Date: 20120611
  Receipt Date: 20130723
  Transmission Date: 20140515
  Serious: Yes (Disabling)
  Sender: FDA-Public Use
  Company Number: US-ASTRAZENECA-2012SE34547

PATIENT
  Sex: Female

DRUGS (18)
  1. NEXIUM [Suspect]
     Indication: GASTROOESOPHAGEAL REFLUX DISEASE
     Route: 048
  2. PEPCID [Concomitant]
  3. TUMS [Concomitant]
  4. ALKA-SELTZER [Concomitant]
  5. PHILLIPS^ MILK OF MAGNESIA [Concomitant]
  6. AMLODIPINE [Concomitant]
  7. CLOPIDOGREL [Concomitant]
  8. ASPIRIN [Concomitant]
  9. HYDROCHLOROT [Concomitant]
  10. ISOSORVMONO [Concomitant]
     Indication: CARDIAC DISORDER
  11. ATENOLOL [Concomitant]
  12. PANTOPRAZOLE [Concomitant]
     Indication: BLOOD PRESSURE ABNORMAL
  13. ENALATRIL [Concomitant]
  14. METCLOPRAM [Concomitant]
     Indication: GASTROOESOPHAGEAL REFLUX DISEASE
  15. PRAVASTATIN [Concomitant]
     Indication: BLOOD CHOLESTEROL
  16. FERROUS SULFATE [Concomitant]
     Indication: IRON DEFICIENCY
  17. METFORMIN [Concomitant]
     Indication: DIABETES MELLITUS
  18. LEVOTHYROXIN [Concomitant]
     Indication: THYROID DISORDER

REACTIONS (11)
  - Back injury [Unknown]
  - Myocardial infarction [Unknown]
  - Osteoporosis [Unknown]
  - Multiple fractures [Unknown]
  - Aortic disorder [Unknown]
  - Arthritis [Unknown]
  - Cataract [Unknown]
  - Diabetes mellitus [Unknown]
  - Sarcoidosis [Unknown]
  - Joint injury [Unknown]
  - Arthralgia [Unknown]
